FAERS Safety Report 5440759-8 (Version None)
Quarter: 2007Q3

REPORT INFORMATION
  Report Type: 
  Country: None (occurrence: None)
  Receive Date: 20070831
  Receipt Date: 20070824
  Transmission Date: 20080115
  Serious: Yes (Hospitalization, Other)
  Sender: FDA-Public Use
  Company Number: PHBS2007CH14158

PATIENT
  Age: 73 Year
  Sex: Male

DRUGS (11)
  1. ZOMETA [Suspect]
     Indication: NEOPLASM PROSTATE
     Dosage: 4 MG, QMO
     Route: 042
     Dates: start: 20060101, end: 20070701
  2. IRBESARTAN [Suspect]
     Indication: HYPERTENSION
     Dosage: 150 MG, D
     Dates: end: 20070726
  3. ASPIRIN [Concomitant]
     Dosage: 100 MG, D
  4. PLAVIX [Concomitant]
     Dosage: 75 MG, D
  5. LANSOPRAZOLE [Concomitant]
     Dosage: 15 MG, D
     Dates: end: 20070726
  6. DAFALGAN [Concomitant]
  7. SORTIS [Concomitant]
     Indication: HYPERLIPIDAEMIA
     Dosage: 40 MG, D
     Dates: end: 20070726
  8. ZOLADEX [Concomitant]
     Indication: NEOPLASM PROSTATE
     Dosage: 1 DF, QD
  9. BELOC [Concomitant]
     Indication: HYPERTENSION
     Dosage: 150 MG, D
  10. CORVATON [Concomitant]
     Dosage: 8 MG,D
  11. NITRODERM [Concomitant]
     Route: 062

REACTIONS (8)
  - ASPARTATE AMINOTRANSFERASE INCREASED [None]
  - BLOOD ALKALINE PHOSPHATASE INCREASED [None]
  - BLOOD CREATININE INCREASED [None]
  - C-REACTIVE PROTEIN INCREASED [None]
  - GAMMA-GLUTAMYLTRANSFERASE INCREASED [None]
  - RENAL FAILURE ACUTE [None]
  - RENAL TUBULAR NECROSIS [None]
  - SCINTIGRAPHY [None]
